FAERS Safety Report 8285972-X (Version None)
Quarter: 2012Q2

REPORT INFORMATION
  Report Type: 
  Country: None (occurrence: None)
  Receive Date: 20120416
  Receipt Date: 20120403
  Transmission Date: 20120825
  Serious: Yes (Other)
  Sender: FDA-Public Use
  Company Number: AR-AMGEN-ARGSP2012022164

PATIENT
  Age: 80 Year
  Sex: Female

DRUGS (5)
  1. ENBREL [Suspect]
     Indication: RHEUMATOID ARTHRITIS
     Dosage: 50 MG, WEEKLY
     Route: 058
     Dates: start: 20100602
  2. IBANDRONATE SODIUM [Concomitant]
     Dosage: UNK
  3. METHOTREXATE [Concomitant]
     Dosage: UNK
  4. FOLIC ACID [Concomitant]
     Dosage: UNK
  5. CORTICOSTEROID NOS [Concomitant]
     Dosage: UNK

REACTIONS (3)
  - UPPER LIMB FRACTURE [None]
  - FALL [None]
  - OCULAR HYPERAEMIA [None]
